FAERS Safety Report 6982765-8 (Version None)
Quarter: 2010Q3

REPORT INFORMATION
  Report Type: 
  Country: None (occurrence: None)
  Receive Date: 20100914
  Receipt Date: 20100323
  Transmission Date: 20110219
  Serious: Yes (Other)
  Sender: FDA-Public Use
  Company Number: US-PFIZER INC-2010038411

PATIENT
  Sex: Female
  Weight: 39.002 kg

DRUGS (6)
  1. LYRICA [Suspect]
     Indication: TRIGEMINAL NEURALGIA
     Dosage: 50 MG, 2X/DAY
     Dates: start: 20100301, end: 20100301
  2. DARVOCET [Concomitant]
     Dosage: UNK
  3. DILTIAZEM [Concomitant]
     Dosage: 180 MG, UNK
  4. VALSARTAN [Concomitant]
     Indication: HYPERTENSION
     Dosage: 80 MG, UNK
  5. PANTOPRAZOLE [Concomitant]
     Indication: GASTROOESOPHAGEAL REFLUX DISEASE
     Dosage: UNK
  6. POTASSIUM [Concomitant]
     Dosage: 10 MEQ, 2X/DAY

REACTIONS (3)
  - DRUG INEFFECTIVE FOR UNAPPROVED INDICATION [None]
  - EYE HAEMORRHAGE [None]
  - OEDEMA PERIPHERAL [None]
